FAERS Safety Report 14769152 (Version 1)
Quarter: 2018Q2

REPORT INFORMATION
  Report Type: Spontaneous
  Country: US (occurrence: US)
  Receive Date: 20180417
  Receipt Date: 20180417
  Transmission Date: 20180711
  Serious: Yes (Other)
  Sender: FDA-Public Use
  Company Number: US-SEBELA IRELAND LIMITED-2018SEB00091

PATIENT
  Sex: Female

DRUGS (3)
  1. BRISDELLE [Suspect]
     Active Substance: PAROXETINE MESYLATE
     Dosage: UNK
     Dates: start: 2017
  2. MINIVELLE [Concomitant]
     Active Substance: ESTRADIOL
     Route: 062
  3. ESTRADIOL TRANSDERMAL SYSTEM [Concomitant]
     Active Substance: ESTRADIOL

REACTIONS (5)
  - Intentional product use issue [Unknown]
  - Dizziness [Unknown]
  - Feeling abnormal [Unknown]
  - Hysterectomy [Unknown]
  - Hot flush [Unknown]
